FAERS Safety Report 9356963 (Version 1)
Quarter: 2013Q2

REPORT INFORMATION
  Report Type: Report from Study
  Country: US (occurrence: US)
  Receive Date: 20130620
  Receipt Date: 20130620
  Transmission Date: 20140414
  Serious: Yes (Other)
  Sender: FDA-Public Use
  Company Number: US-B.I. PHARMACEUTICALS,INC./RIDGEFIELD-2013-BI-17058BP

PATIENT
  Age: 34 Year
  Sex: Female

DRUGS (2)
  1. VIRAMUNE [Suspect]
     Indication: EXPOSURE DURING PREGNANCY
     Dosage: 400 MG
     Route: 048
     Dates: start: 20101117
  2. TRUVADA [Concomitant]
     Indication: EXPOSURE DURING PREGNANCY
     Route: 048
     Dates: start: 20110114

REACTIONS (1)
  - Abortion spontaneous [Unknown]
